FAERS Safety Report 18051534 (Version 1)
Quarter: 2020Q3

REPORT INFORMATION
  Report Type: Spontaneous
  Country: FR (occurrence: FR)
  Receive Date: 20200721
  Receipt Date: 20200721
  Transmission Date: 20201103
  Serious: Yes (Hospitalization)
  Sender: FDA-Public Use
  Company Number: FR-BAUSCH-BL-2020-020040

PATIENT
  Age: 53 Year
  Sex: Female

DRUGS (2)
  1. GENTAMICINE [Suspect]
     Active Substance: GENTAMICIN
     Indication: ENDOCARDITIS
     Route: 042
     Dates: start: 20181019, end: 20181026
  2. CLOXACILLINE [Suspect]
     Active Substance: CLOXACILLIN
     Indication: ENDOCARDITIS
     Route: 042
     Dates: start: 20181019, end: 20181107

REACTIONS (1)
  - Acute kidney injury [Recovered/Resolved]

NARRATIVE: CASE EVENT DATE: 20181022
